FAERS Safety Report 8381928-7 (Version None)
Quarter: 2012Q2

REPORT INFORMATION
  Report Type: 
  Country: None (occurrence: None)
  Receive Date: 20120524
  Receipt Date: 20120509
  Transmission Date: 20120825
  Serious: Yes (Hospitalization)
  Sender: FDA-Public Use
  Company Number: CA-JNJFOC-20120510266

PATIENT
  Sex: Male
  Weight: 62 kg

DRUGS (9)
  1. COLACE [Concomitant]
     Route: 065
  2. IMOVANE [Suspect]
     Indication: PRODUCT USED FOR UNKNOWN INDICATION
     Route: 065
  3. DIOVAN [Concomitant]
     Route: 065
  4. REMICADE [Suspect]
     Indication: ANKYLOSING SPONDYLITIS
     Dosage: 7.5 MG/KG
     Route: 042
     Dates: start: 20110414
  5. FENTANYL-100 [Concomitant]
     Route: 065
  6. NARCOTIC ANALGESICS, NOS [Concomitant]
     Route: 065
  7. REMICADE [Suspect]
     Route: 042
     Dates: start: 20120509
  8. PANTOPRAZOLE [Concomitant]
     Route: 065
  9. TYLENOL W/ CODEINE NO. 3 [Concomitant]
     Route: 065

REACTIONS (6)
  - HYPERHIDROSIS [None]
  - DYSPNOEA [None]
  - WITHDRAWAL SYNDROME [None]
  - MUSCLE TWITCHING [None]
  - CHEST PAIN [None]
  - INFUSION RELATED REACTION [None]
